FAERS Safety Report 4400001-3 (Version None)
Quarter: 2004Q3

REPORT INFORMATION
  Report Type: 
  Country: None (occurrence: None)
  Receive Date: 20040714
  Receipt Date: 20040705
  Transmission Date: 20050211
  Serious: Yes (Other)
  Sender: FDA-Public Use
  Company Number: 2004-06-2175

PATIENT
  Age: 57 Year
  Sex: Male

DRUGS (1)
  1. DIPROGENTA CREAM [Suspect]
     Indication: PRURITUS ANI
     Dosage: BID TOP-DERM
     Route: 061
     Dates: start: 20040604, end: 20040607

REACTIONS (2)
  - DERMATITIS CONTACT [None]
  - HYPERSENSITIVITY [None]
